FAERS Safety Report 11531121 (Version 1)
Quarter: 2015Q3

REPORT INFORMATION
  Report Type: Spontaneous
  Country: US (occurrence: US)
  Receive Date: 20150921
  Receipt Date: 20150921
  Transmission Date: 20151125
  Serious: Yes (Other)
  Sender: FDA-Public Use
  Company Number: US-PFIZER INC-2015315192

PATIENT
  Age: 5 Decade
  Sex: Female

DRUGS (2)
  1. DUAVEE [Suspect]
     Active Substance: BAZEDOXIFENE ACETATE\ESTROGENS, CONJUGATED
     Indication: HOT FLUSH
  2. DUAVEE [Suspect]
     Active Substance: BAZEDOXIFENE ACETATE\ESTROGENS, CONJUGATED
     Indication: BONE DENSITY DECREASED
     Dosage: UNK, BAZEDOXIFENE ACETATE 20 MG, CONJUGATED ESTROGENS 0.45 MG

REACTIONS (2)
  - Transient ischaemic attack [Recovering/Resolving]
  - Thrombosis [Unknown]
